FAERS Safety Report 6597058-0 (Version None)
Quarter: 2010Q1

REPORT INFORMATION
  Report Type: 
  Country: None (occurrence: None)
  Receive Date: 20100223
  Receipt Date: 20100215
  Transmission Date: 20100710
  Serious: Yes (Hospitalization)
  Sender: FDA-Public Use
  Company Number: B0476268A

PATIENT
  Sex: Female
  Weight: 30 kg

DRUGS (11)
  1. HEPSERA [Suspect]
     Indication: HEPATITIS B
     Dosage: 100MG PER DAY
     Route: 048
     Dates: start: 20051213, end: 20080111
  2. ZEFIX [Suspect]
     Route: 048
     Dates: start: 20041101
  3. GASTER [Concomitant]
     Indication: GASTRITIS
     Dosage: 20MG PER DAY
     Route: 048
  4. MUCOSTA [Concomitant]
     Indication: GASTRITIS
     Dosage: 300MG PER DAY
     Route: 048
  5. PORTALAK [Concomitant]
     Indication: HEPATIC CIRRHOSIS
     Dosage: 18G PER DAY
     Route: 048
  6. LIVACT [Concomitant]
     Indication: HEPATIC CIRRHOSIS
     Dosage: 12.45G PER DAY
     Route: 048
  7. URSO 250 [Concomitant]
     Indication: HEPATIC CIRRHOSIS
     Dosage: 300MG PER DAY
     Route: 048
  8. ALFAROL [Concomitant]
     Indication: OSTEOPOROSIS
     Dosage: 1MCG PER DAY
     Route: 048
  9. BENET [Concomitant]
     Indication: OSTEOPOROSIS
     Dosage: 2.5MG PER DAY
     Route: 048
     Dates: end: 20070612
  10. MAGMITT [Concomitant]
     Indication: CONSTIPATION
     Dosage: 660MG PER DAY
     Route: 048
     Dates: end: 20070605
  11. SENNOSIDE [Concomitant]
     Indication: CONSTIPATION
     Dosage: 24MG PER DAY
     Route: 048

REACTIONS (14)
  - AMINOACIDURIA [None]
  - ARTHRALGIA [None]
  - BACK PAIN [None]
  - BLOOD ALKALINE PHOSPHATASE INCREASED [None]
  - BONE DISORDER [None]
  - FANCONI SYNDROME [None]
  - GLYCOSURIA [None]
  - HEPATITIS B DNA INCREASED [None]
  - HYPOPHOSPHATAEMIA [None]
  - OEDEMA PERIPHERAL [None]
  - OSTEOMALACIA [None]
  - PAIN IN EXTREMITY [None]
  - PATHOGEN RESISTANCE [None]
  - PROTEINURIA [None]
